FAERS Safety Report 25429370 (Version 2)
Quarter: 2025Q3

REPORT INFORMATION
  Report Type: Report from Study
  Country: EU (occurrence: EU)
  Receive Date: 20250612
  Receipt Date: 20250814
  Transmission Date: 20251021
  Serious: Yes (Hospitalization)
  Sender: UCB
  Company Number: EU-UCBSA-2025034030

PATIENT
  Sex: Male
  Weight: 49 kg

DRUGS (9)
  1. FENFLURAMINE HYDROCHLORIDE [Suspect]
     Active Substance: FENFLURAMINE HYDROCHLORIDE
     Indication: Epilepsy
     Dosage: 3 MILLILITER, 2X/DAY (BID)
     Route: 048
     Dates: start: 20230512, end: 20250518
  2. FENFLURAMINE HYDROCHLORIDE [Suspect]
     Active Substance: FENFLURAMINE HYDROCHLORIDE
     Route: 048
     Dates: start: 20250519, end: 20250602
  3. FENFLURAMINE HYDROCHLORIDE [Suspect]
     Active Substance: FENFLURAMINE HYDROCHLORIDE
     Dosage: 2 MILLILITER, 2X/DAY (BID)
     Route: 048
     Dates: start: 20250603
  4. CANNABIDIOL [Suspect]
     Active Substance: CANNABIDIOL
     Indication: Epilepsy
     Dosage: 500 MILLIGRAM, 2X/DAY (BID)
     Route: 048
     Dates: start: 20201110, end: 20250422
  5. CANNABIDIOL [Suspect]
     Active Substance: CANNABIDIOL
     Dosage: 400 MILLIGRAM, 2X/DAY (BID)
     Route: 048
     Dates: start: 20250424, end: 20250430
  6. CANNABIDIOL [Suspect]
     Active Substance: CANNABIDIOL
     Dosage: 300 MILLIGRAM, 2X/DAY (BID)
     Route: 048
     Dates: start: 20250501
  7. CANNABIDIOL [Suspect]
     Active Substance: CANNABIDIOL
     Route: 048
     Dates: start: 20250513
  8. VALPROATE SODIUM [Concomitant]
     Active Substance: VALPROATE SODIUM
     Indication: Epilepsy
     Dosage: 500 MILLIGRAM, 2X/DAY (BID)
     Route: 048
     Dates: start: 20240318
  9. CLOBAZAM [Concomitant]
     Active Substance: CLOBAZAM
     Indication: Epilepsy
     Dosage: 5 MILLIGRAM, 2X/DAY (BID)
     Route: 048
     Dates: start: 20220429

REACTIONS (7)
  - Lung disorder [Recovered/Resolved]
  - Diarrhoea [Recovered/Resolved]
  - Weight decreased [Recovered/Resolved]
  - Decreased appetite [Recovered/Resolved]
  - Gastrointestinal pain [Recovered/Resolved]
  - Apathy [Recovered/Resolved]
  - Product use issue [Unknown]

NARRATIVE: CASE EVENT DATE: 20250101
